FAERS Safety Report 12406310 (Version 1)
Quarter: 2016Q2

REPORT INFORMATION
  Report Type: Spontaneous
  Country: ES (occurrence: ES)
  Receive Date: 20160526
  Receipt Date: 20160526
  Transmission Date: 20160815
  Serious: Yes (Hospitalization, Other)
  Sender: FDA-Public Use
  Company Number: ES-WATSON-2016-10860

PATIENT
  Age: 80 Year
  Sex: Female

DRUGS (2)
  1. MYCOPHENOLATE MOFETIL (UNKNOWN) [Suspect]
     Active Substance: MYCOPHENOLATE MOFETIL
     Indication: IMMUNOSUPPRESSION
     Dosage: 1500 MG, DAILY
     Route: 065
     Dates: start: 2004
  2. CYCLOSPORINE (UNKNOWN) [Suspect]
     Active Substance: CYCLOSPORINE
     Indication: IMMUNOSUPPRESSION
     Dosage: 75 MG, DAILY
     Route: 065
     Dates: start: 2004

REACTIONS (2)
  - Skin angiosarcoma [Unknown]
  - Metastases to peritoneum [Unknown]
